FAERS Safety Report 18464645 (Version 2)
Quarter: 2020Q4

REPORT INFORMATION
  Report Type: Report from Study
  Country: None (occurrence: RO)
  Receive Date: 20201104
  Receipt Date: 20201114
  Transmission Date: 20210114
  Serious: Yes (Death, Hospitalization)
  Sender: FDA-Public Use
  Company Number: RO-ABBVIE-20K-135-3633581-00

PATIENT
  Age: 73 Year
  Sex: Male

DRUGS (6)
  1. DUODOPA [Suspect]
     Active Substance: CARBIDOPA\LEVODOPA
  2. PRESTARIUM [Concomitant]
     Active Substance: PERINDOPRIL
     Indication: MYOCARDIAL ISCHAEMIA
     Route: 048
  3. LERIDIP [Concomitant]
     Indication: MYOCARDIAL ISCHAEMIA
     Route: 048
  4. BETALOK ZOK [Concomitant]
     Indication: MYOCARDIAL ISCHAEMIA
     Route: 048
  5. DUODOPA [Suspect]
     Active Substance: CARBIDOPA\LEVODOPA
     Indication: PARKINSON^S DISEASE
     Dosage: DM=8.00 DC=4.80 ED=2.50 NRED=2; DMN=0.00 DCN=0.00 EDN=0.00 NREDN=0
     Route: 050
     Dates: start: 20191031
  6. SIOFOR [Concomitant]
     Active Substance: METFORMIN HYDROCHLORIDE
     Indication: DIABETES MELLITUS
     Route: 048

REACTIONS (2)
  - Respiratory failure [Recovering/Resolving]
  - COVID-19 [Fatal]

NARRATIVE: CASE EVENT DATE: 20201030
